FAERS Safety Report 11415668 (Version 1)
Quarter: 2015Q3

REPORT INFORMATION
  Report Type: Spontaneous
  Country: US (occurrence: None)
  Receive Date: 20150824
  Receipt Date: 20150824
  Transmission Date: 20151125
  Serious: Yes (Other)
  Sender: FDA-Public Use
  Company Number: None

PATIENT
  Age: 32 Year
  Sex: Female

DRUGS (3)
  1. MODAFINIL TABLETS 200 MG [Suspect]
     Active Substance: MODAFINIL
     Indication: ASTHENIA
     Route: 048
  2. MODAFINIL TABLETS 200 MG [Suspect]
     Active Substance: MODAFINIL
     Indication: CRANIOCEREBRAL INJURY
     Route: 048
  3. MODAFINIL TABLETS 200 MG [Suspect]
     Active Substance: MODAFINIL
     Indication: FATIGUE
     Route: 048

REACTIONS (3)
  - Muscular weakness [None]
  - Drug effect decreased [None]
  - Product quality issue [None]
